FAERS Safety Report 4761131-X (Version None)
Quarter: 2005Q3

REPORT INFORMATION
  Report Type: 
  Country: None (occurrence: None)
  Receive Date: 20050902
  Receipt Date: 20050902
  Transmission Date: 20060218
  Serious: Yes (Disabling)
  Sender: FDA-Public Use
  Company Number: None

PATIENT
  Age: 13 Year
  Sex: Female
  Weight: 45 kg

DRUGS (5)
  1. RITUXAN [Suspect]
     Indication: WEGENER'S GRANULOMATOSIS
     Dosage: 500 MG   ONCE A WEEK    IV
     Route: 042
     Dates: start: 20050429, end: 20050510
  2. PREDNISONE TAB [Concomitant]
  3. FLUOXETINE [Concomitant]
  4. BACTRIM [Concomitant]
  5. FLONASE [Concomitant]

REACTIONS (4)
  - POLYARTHRITIS [None]
  - RED BLOOD CELL SEDIMENTATION RATE INCREASED [None]
  - SYNOVITIS [None]
  - TENDERNESS [None]
